FAERS Safety Report 23966669 (Version 3)
Quarter: 2024Q3

REPORT INFORMATION
  Report Type: Spontaneous
  Country: US (occurrence: US)
  Receive Date: 20240612
  Receipt Date: 20240717
  Transmission Date: 20241016
  Serious: No
  Sender: ROCHE
  Company Number: US-ROCHE-3577060

PATIENT
  Age: 14 Year
  Sex: Male
  Weight: 44.0 kg

DRUGS (3)
  1. NUTROPIN AQ [Suspect]
     Active Substance: SOMATROPIN
     Indication: Growth hormone deficiency
     Route: 058
  2. NUTROPIN AQ [Suspect]
     Active Substance: SOMATROPIN
     Route: 058
  3. CYPROHEPTADINE [Concomitant]
     Active Substance: CYPROHEPTADINE
     Indication: Increased appetite
     Dosage: TAKES WITH WATER
     Route: 048

REACTIONS (5)
  - Product storage error [Unknown]
  - Device malfunction [Unknown]
  - Needle issue [Unknown]
  - Device physical property issue [Unknown]
  - Lyme disease [Recovered/Resolved]

NARRATIVE: CASE EVENT DATE: 20240603
